FAERS Safety Report 7705181-X (Version None)
Quarter: 2011Q3

REPORT INFORMATION
  Report Type: 
  Country: None (occurrence: None)
  Receive Date: 20110824
  Receipt Date: 20110818
  Transmission Date: 20111222
  Serious: Yes (Other)
  Sender: FDA-Public Use
  Company Number: US-BRISTOL-MYERS SQUIBB COMPANY-15920994

PATIENT
  Age: 64 Year
  Sex: Male
  Weight: 81 kg

DRUGS (4)
  1. PROTONIX [Concomitant]
  2. COUMADIN [Suspect]
     Indication: CEREBROVASCULAR ACCIDENT
     Dosage: FOR 7 YEARS  DOSE REDUCED TO 2.5MG ON 2011
     Dates: start: 20040101
  3. JANUMET [Concomitant]
  4. GLUCOTROL [Concomitant]

REACTIONS (5)
  - HEPATOMEGALY [None]
  - INTERNATIONAL NORMALISED RATIO INCREASED [None]
  - LEUKOCYTOSIS [None]
  - ATRIAL FIBRILLATION [None]
  - HEPATIC CANCER METASTATIC [None]
